FAERS Safety Report 8416462-9 (Version None)
Quarter: 2012Q2

REPORT INFORMATION
  Report Type: 
  Country: None (occurrence: None)
  Receive Date: 20120606
  Receipt Date: 20120529
  Transmission Date: 20120825
  Serious: Yes (Other)
  Sender: FDA-Public Use
  Company Number: US-GLAXOSMITHKLINE-A0979925A

PATIENT
  Sex: Female

DRUGS (4)
  1. METAMUCIL-2 [Concomitant]
  2. ZOLOFT [Suspect]
     Indication: PRODUCT USED FOR UNKNOWN INDICATION
     Dosage: 50MG PER DAY
     Route: 065
     Dates: start: 20080205
  3. ALLI [Suspect]
     Indication: WEIGHT DECREASED
     Route: 065
  4. UNKNOWN BIRTH CONTROL PILL [Concomitant]

REACTIONS (1)
  - HEPATITIS ACUTE [None]
